FAERS Safety Report 5955934-3 (Version None)
Quarter: 2008Q4

REPORT INFORMATION
  Report Type: 
  Country: None (occurrence: None)
  Receive Date: 20081112
  Receipt Date: 20081031
  Transmission Date: 20090506
  Serious: Yes (Hospitalization)
  Sender: FDA-Public Use
  Company Number: 237275J08USA

PATIENT
  Age: 49 Year
  Sex: Male
  Weight: 53 kg

DRUGS (3)
  1. REBIF [Suspect]
     Indication: MULTIPLE SCLEROSIS
     Dosage: 44 MCG, 3 IN 1 WEEKS, SUBCUTANEOUS
     Route: 058
     Dates: start: 20020724, end: 20080101
  2. ALEVE (CAPLET) [Concomitant]
  3. VIAGRA [Concomitant]

REACTIONS (6)
  - GALLBLADDER CANCER [None]
  - LOSS OF CONSCIOUSNESS [None]
  - METASTASES TO BILIARY TRACT [None]
  - METASTASES TO LIVER [None]
  - METASTASES TO LYMPH NODES [None]
  - METASTASES TO SMALL INTESTINE [None]
